FAERS Safety Report 14070629 (Version 1)
Quarter: 2017Q4

REPORT INFORMATION
  Report Type: Report from Study
  Country: US (occurrence: US)
  Receive Date: 20171011
  Receipt Date: 20171011
  Transmission Date: 20180321
  Serious: Yes (Hospitalization)
  Sender: FDA-Public Use
  Company Number: US-BIOGEN-2017BI00463632

PATIENT
  Sex: Female

DRUGS (1)
  1. TECFIDERA [Suspect]
     Active Substance: DIMETHYL FUMARATE
     Indication: MULTIPLE SCLEROSIS
     Route: 048

REACTIONS (9)
  - Systemic inflammatory response syndrome [Unknown]
  - Urinary tract infection [Unknown]
  - Microcytic anaemia [Unknown]
  - Syncope [Unknown]
  - Vitamin D deficiency [Unknown]
  - Metabolic encephalopathy [Unknown]
  - Malnutrition [Unknown]
  - Relapsing-remitting multiple sclerosis [Unknown]
  - Underweight [Unknown]
